FAERS Safety Report 16418749 (Version 1)
Quarter: 2019Q2

REPORT INFORMATION
  Report Type: Spontaneous
  Country: US (occurrence: US)
  Receive Date: 20190612
  Receipt Date: 20190612
  Transmission Date: 20190711
  Serious: No
  Sender: FDA-Public Use
  Company Number: US-UNITED THERAPEUTICS-UNT-2019-009920

PATIENT
  Age: 59 Year
  Sex: Female
  Weight: 72.56 kg

DRUGS (1)
  1. REMODULIN [Suspect]
     Active Substance: TREPROSTINIL
     Indication: PULMONARY ARTERIAL HYPERTENSION
     Dosage: 0.077 ?G/KG, CONTINUING
     Route: 041
     Dates: start: 20190116

REACTIONS (3)
  - Headache [Unknown]
  - Injection site haemorrhage [Unknown]
  - Injection site extravasation [Unknown]

NARRATIVE: CASE EVENT DATE: 20190603
